FAERS Safety Report 18538616 (Version 1)
Quarter: 2020Q4

REPORT INFORMATION
  Report Type: Spontaneous
  Country: NI (occurrence: NI)
  Receive Date: 20201124
  Receipt Date: 20201124
  Transmission Date: 20210114
  Serious: Yes (Death, Other)
  Sender: FDA-Public Use
  Company Number: NVSC2020NI311514

PATIENT
  Age: 35 Year
  Sex: Male

DRUGS (1)
  1. GLIVEC [Suspect]
     Active Substance: IMATINIB MESYLATE
     Indication: GASTROINTESTINAL STROMAL TUMOUR
     Dosage: 400 MG (1 X 400MG TABLET)
     Route: 065

REACTIONS (4)
  - Death [Fatal]
  - Brain hypoxia [Unknown]
  - Abnormal behaviour [Unknown]
  - Screaming [Unknown]

NARRATIVE: CASE EVENT DATE: 20190914
